FAERS Safety Report 7206499-X (Version None)
Quarter: 2010Q4

REPORT INFORMATION
  Report Type: 
  Country: None (occurrence: None)
  Receive Date: 20101229
  Receipt Date: 20101229
  Transmission Date: 20110411
  Serious: No
  Sender: FDA-Public Use
  Company Number: None

PATIENT
  Age: 30 Year
  Sex: Female
  Weight: 72.5755 kg

DRUGS (1)
  1. HYDROXYCHLOROQUINE [Suspect]
     Indication: SYSTEMIC LUPUS ERYTHEMATOSUS
     Dosage: 200MG 1 TABLET TWICE DAY PO
     Route: 048
     Dates: start: 20100301, end: 20100417

REACTIONS (3)
  - ALOPECIA [None]
  - DEPRESSION [None]
  - FATIGUE [None]
